FAERS Safety Report 9168938 (Version 6)
Quarter: 2016Q3

REPORT INFORMATION
  Report Type: Report from Study
  Country: CA (occurrence: CA)
  Receive Date: 20130318
  Receipt Date: 20160923
  Transmission Date: 20161109
  Serious: Yes (Other)
  Sender: FDA-Public Use
  Company Number: CA-ROCHE-1202711

PATIENT
  Age: 59 Year
  Sex: Female
  Weight: 83.5 kg

DRUGS (16)
  1. PREMARIN [Concomitant]
     Active Substance: ESTROGENS, CONJUGATED
  2. VITAMIN E [Concomitant]
     Active Substance: .ALPHA.-TOCOPHEROL
  3. FAMOTIDINE. [Concomitant]
     Active Substance: FAMOTIDINE
  4. RITUXAN [Suspect]
     Active Substance: RITUXIMAB
     Indication: RHEUMATOID ARTHRITIS
     Dosage: LAST DOSE WAS ON 16/DEC/2013, ON 05/APR/2016, SHE RECEIVED LAST DOSE RITUXIMAB
     Route: 042
     Dates: start: 20130513
  5. DILANTIN [Concomitant]
     Active Substance: PHENYTOIN
  6. METHYLPREDNISOLONE. [Concomitant]
     Active Substance: METHYLPREDNISOLONE
     Indication: PREMEDICATION
     Route: 042
     Dates: start: 20130513
  7. ACTEMRA [Suspect]
     Active Substance: TOCILIZUMAB
     Indication: RHEUMATOID ARTHRITIS
     Route: 042
     Dates: start: 20130129, end: 20130129
  8. FLUOXETINE [Concomitant]
     Active Substance: FLUOXETINE HYDROCHLORIDE
  9. CELEBREX [Concomitant]
     Active Substance: CELECOXIB
  10. METFORMIN [Concomitant]
     Active Substance: METFORMIN HYDROCHLORIDE
  11. MEDROXY [Concomitant]
     Active Substance: MEDROXYPROGESTERONE ACETATE
  12. PARIET [Concomitant]
     Active Substance: RABEPRAZOLE SODIUM
  13. CYCLOSPORINE A [Concomitant]
     Active Substance: CYCLOSPORINE
  14. DIPHENHYDRAMINE HCL [Concomitant]
     Active Substance: DIPHENHYDRAMINE HYDROCHLORIDE
     Route: 048
     Dates: start: 20130513
  15. GLICLAZIDE [Concomitant]
     Active Substance: GLICLAZIDE
     Route: 065
  16. ACETAMINOPHEN. [Concomitant]
     Active Substance: ACETAMINOPHEN
     Indication: PREMEDICATION
     Route: 048
     Dates: start: 20130513

REACTIONS (5)
  - Infusion related reaction [Recovered/Resolved]
  - Drug effect decreased [Unknown]
  - Pancreatitis [Unknown]
  - Arthralgia [Not Recovered/Not Resolved]
  - Type 2 diabetes mellitus [Not Recovered/Not Resolved]

NARRATIVE: CASE EVENT DATE: 20130513
